FAERS Safety Report 5213834-0 (Version None)
Quarter: 2007Q1

REPORT INFORMATION
  Report Type: 
  Country: None (occurrence: None)
  Receive Date: 20070117
  Receipt Date: 20070103
  Transmission Date: 20070707
  Serious: Yes (Other)
  Sender: FDA-Public Use
  Company Number: DSA_61288_2006

PATIENT
  Age: 6 Year
  Sex: Male

DRUGS (2)
  1. DIASTAT [Suspect]
     Indication: CONVULSION
     Dosage: 10 MG ONCE RC
     Dates: start: 20051109, end: 20051109
  2. DIASTAT [Suspect]
     Indication: CONVULSION
     Dosage: 5 MG RC
     Dates: start: 20051109

REACTIONS (6)
  - DIARRHOEA [None]
  - DYSPNOEA [None]
  - FLUSHING [None]
  - HEADACHE [None]
  - INCORRECT DOSE ADMINISTERED [None]
  - SOMNOLENCE [None]
